FAERS Safety Report 10518962 (Version 3)
Quarter: 2015Q3

REPORT INFORMATION
  Report Type: Spontaneous
  Country: NL (occurrence: NL)
  Receive Date: 20141015
  Receipt Date: 20150819
  Transmission Date: 20151125
  Serious: Yes (Death, Other)
  Sender: FDA-Public Use
  Company Number: PHBS2003NL09105

PATIENT
  Age: 60 Year
  Sex: Male

DRUGS (9)
  1. IMIPRAMINE [Suspect]
     Active Substance: IMIPRAMINE
     Indication: DEPRESSION
     Dosage: 75 MG/DAILY
     Route: 065
  2. TRANYLCYPROMINE [Interacting]
     Active Substance: TRANYLCYPROMINE
     Indication: DEPRESSION
     Dosage: 50 MG, BID
     Route: 065
  3. DEXAMETHASONE. [Concomitant]
     Active Substance: DEXAMETHASONE
     Indication: PRODUCT USED FOR UNKNOWN INDICATION
     Dosage: 16 MG/DAY
     Route: 042
  4. PANCURONIUM [Concomitant]
     Active Substance: PANCURONIUM
     Indication: PRODUCT USED FOR UNKNOWN INDICATION
     Dosage: 2 MG/H, UNK
     Route: 042
  5. DANTROLENE SODIUM. [Concomitant]
     Active Substance: DANTROLENE SODIUM
     Indication: PRODUCT USED FOR UNKNOWN INDICATION
     Dosage: 500 MG, QD
     Route: 042
  6. MIDAZOLAM [Concomitant]
     Active Substance: MIDAZOLAM\MIDAZOLAM HYDROCHLORIDE
     Indication: PRODUCT USED FOR UNKNOWN INDICATION
     Dosage: 5 MG/H, UNK
     Route: 042
  7. IMIPRAMINE [Interacting]
     Active Substance: IMIPRAMINE
     Dosage: 225 MG, UNK
     Route: 065
  8. MANNITOL. [Concomitant]
     Active Substance: MANNITOL
     Indication: PRODUCT USED FOR UNKNOWN INDICATION
     Dosage: 100 ML, 20%
     Route: 042
  9. TRANYLCYPROMINE [Interacting]
     Active Substance: TRANYLCYPROMINE
     Dosage: 225 MG, UNK

REACTIONS (24)
  - Serotonin syndrome [Fatal]
  - Hyperthermia [Fatal]
  - Tachycardia [Fatal]
  - Hypertension [Fatal]
  - Vomiting [Fatal]
  - Myoclonus [Fatal]
  - Brain oedema [Fatal]
  - Confusional state [Fatal]
  - Muscle rigidity [Fatal]
  - Pupil fixed [Fatal]
  - Mydriasis [Fatal]
  - Brain hypoxia [Fatal]
  - Brain death [Unknown]
  - Drug ineffective [Unknown]
  - Depressed level of consciousness [Fatal]
  - Blood creatine phosphokinase increased [Fatal]
  - Drug interaction [Unknown]
  - Agitation [Fatal]
  - Respiratory arrest [Unknown]
  - Acidosis [Fatal]
  - Cardiac arrest [Unknown]
  - Blood pressure decreased [Fatal]
  - Coma [Unknown]
  - Medication error [Unknown]
